FAERS Safety Report 21819849 (Version 1)
Quarter: 2023Q1

REPORT INFORMATION
  Report Type: Spontaneous
  Country: TR (occurrence: TR)
  Receive Date: 20230104
  Receipt Date: 20230104
  Transmission Date: 20230417
  Serious: Yes (Other)
  Sender: FDA-Public Use
  Company Number: TR-002147023-NVSC2022TR300756

PATIENT

DRUGS (1)
  1. RUXOLITINIB [Suspect]
     Active Substance: RUXOLITINIB
     Indication: Product used for unknown indication
     Dosage: 20 MG, BID, 2X1 (1 IN MORNING AND 1 IN EVENING), STARTED 6 YEARS AGO
     Route: 048

REACTIONS (3)
  - General physical health deterioration [Unknown]
  - Product supply issue [Unknown]
  - Splenomegaly [Unknown]
